FAERS Safety Report 7264992-8 (Version None)
Quarter: 2011Q1

REPORT INFORMATION
  Report Type: 
  Country: None (occurrence: None)
  Receive Date: 20110131
  Receipt Date: 20110113
  Transmission Date: 20110831
  Serious: Yes (Hospitalization)
  Sender: FDA-Public Use
  Company Number: US-BAYER-2011-003693

PATIENT
  Age: 18 Year
  Sex: Female

DRUGS (1)
  1. YASMIN [Suspect]
     Indication: CONTRACEPTION
     Dosage: UNK
     Route: 048

REACTIONS (7)
  - CHEST PAIN [None]
  - PAINFUL RESPIRATION [None]
  - ABDOMINAL PAIN UPPER [None]
  - RESPIRATORY DISTRESS [None]
  - DYSPNOEA [None]
  - TACHYPNOEA [None]
  - PULMONARY EMBOLISM [None]
